FAERS Safety Report 7172041-5 (Version None)
Quarter: 2010Q4

REPORT INFORMATION
  Report Type: 
  Country: None (occurrence: None)
  Receive Date: 20101217
  Receipt Date: 20100208
  Transmission Date: 20110411
  Serious: Yes (Other)
  Sender: FDA-Public Use
  Company Number: US-AMGEN-KDL391494

PATIENT

DRUGS (3)
  1. ENBREL [Suspect]
     Indication: RHEUMATOID ARTHRITIS
     Dosage: 50 MG, QWK
     Route: 058
  2. LEFLUNOMIDE [Concomitant]
     Dosage: UNK UNK, UNK
  3. REMICADE [Concomitant]
     Dosage: UNK UNK, UNK
     Dates: start: 20030101, end: 20040101

REACTIONS (9)
  - ARTHRALGIA [None]
  - CONVULSION [None]
  - DECREASED APPETITE [None]
  - GAIT DISTURBANCE [None]
  - H1N1 INFLUENZA [None]
  - JOINT SWELLING [None]
  - MUSCULOSKELETAL STIFFNESS [None]
  - RASH ERYTHEMATOUS [None]
  - WEIGHT DECREASED [None]
